FAERS Safety Report 5392226-8 (Version None)
Quarter: 2007Q3

REPORT INFORMATION
  Report Type: 
  Country: None (occurrence: None)
  Receive Date: 20070720
  Receipt Date: 20070719
  Transmission Date: 20080115
  Serious: Yes (Hospitalization, Other)
  Sender: FDA-Public Use
  Company Number: CN-BAYER-200714079GDS

PATIENT
  Sex: Female

DRUGS (4)
  1. NEXAVAR [Suspect]
     Indication: HEPATIC NEOPLASM MALIGNANT
     Dosage: TOTAL DAILY DOSE: 800 MG
     Route: 048
     Dates: start: 20070703, end: 20070717
  2. NEXAVAR [Suspect]
     Dosage: TOTAL DAILY DOSE: 400 MG
     Route: 048
     Dates: start: 20070717, end: 20070717
  3. DEXAMETHASONE 0.5MG TAB [Concomitant]
     Indication: ANAPHYLACTIC REACTION
     Route: 048
     Dates: start: 20070701
  4. CLARITIN [Concomitant]
     Indication: ANAPHYLACTIC REACTION
     Route: 048
     Dates: start: 20070701

REACTIONS (6)
  - BLOOD PRESSURE INCREASED [None]
  - DIARRHOEA [None]
  - PAIN IN EXTREMITY [None]
  - PALMAR-PLANTAR ERYTHRODYSAESTHESIA SYNDROME [None]
  - RASH [None]
  - VENOUS STASIS [None]
